FAERS Safety Report 4554539-9 (Version None)
Quarter: 2005Q1

REPORT INFORMATION
  Report Type: 
  Country: None (occurrence: None)
  Receive Date: 20041227
  Receipt Date: 20041102
  Transmission Date: 20050727
  Serious: No
  Sender: FDA-Public Use
  Company Number: SP00369

PATIENT
  Age: 61 Year
  Sex: Female

DRUGS (2)
  1. RIFAXIMIN (UNKNOWN) [Suspect]
     Indication: GASTROINTESTINAL INFECTION
     Dosage: SEE IMAGE
     Route: 048
  2. ANTIBIOTIC [Concomitant]

REACTIONS (1)
  - TOOTH DISCOLOURATION [None]
